FAERS Safety Report 23805439 (Version 3)
Quarter: 2024Q2

REPORT INFORMATION
  Report Type: Spontaneous
  Country: US (occurrence: US)
  Receive Date: 20240502
  Receipt Date: 20240614
  Transmission Date: 20240716
  Serious: Yes (Hospitalization, Other)
  Sender: FDA-Public Use
  Company Number: US-BRISTOL-MYERS SQUIBB COMPANY-2024-065842

PATIENT
  Age: 54 Year
  Sex: Female
  Weight: 81.01 kg

DRUGS (28)
  1. ZEPOSIA [Suspect]
     Active Substance: OZANIMOD HYDROCHLORIDE
     Indication: Relapsing-remitting multiple sclerosis
     Route: 048
     Dates: start: 202310
  2. ABILIFY DISCMELT [Concomitant]
     Active Substance: ARIPIPRAZOLE
     Indication: Depression
     Dosage: DISINTEGRATING TABLET
     Dates: start: 20211122
  3. ADDERALL [Concomitant]
     Active Substance: AMPHETAMINE ASPARTATE\AMPHETAMINE SULFATE\DEXTROAMPHETAMINE SACCHARATE\DEXTROAMPHETAMINE SULFATE
     Indication: Fatigue
     Route: 048
  4. CARDIZEM LA [Concomitant]
     Active Substance: DILTIAZEM HYDROCHLORIDE
     Indication: Hypertension
     Dosage: EXTENDED RELEASE TABLET
     Route: 048
  5. PFIZER-BIONTECH COVID-19 VACCINE [Concomitant]
     Active Substance: TOZINAMERAN
     Indication: Product used for unknown indication
     Dates: start: 202104
  6. CRESTOR [Concomitant]
     Active Substance: ROSUVASTATIN CALCIUM
     Indication: Hyperlipidaemia
     Route: 048
     Dates: start: 20170929
  7. LASIX [Concomitant]
     Active Substance: FUROSEMIDE
     Indication: Cardiac failure congestive
     Dates: start: 20220602
  8. LOSARTAN [Concomitant]
     Active Substance: LOSARTAN
     Indication: Hypertension
     Dates: start: 20220908
  9. MAXALT [Concomitant]
     Active Substance: RIZATRIPTAN BENZOATE
     Indication: Migraine
     Dosage: 1 PER ORAL ONSET MIGRAINE, MAY REPEAT. TAKE ONE AT ONSET OF MIGRAINE.
     Route: 048
     Dates: start: 20230316
  10. METHYLPHENIDATE [Concomitant]
     Active Substance: METHYLPHENIDATE
     Indication: Attention deficit hyperactivity disorder
     Route: 048
     Dates: start: 20230316
  11. MORPHINE SULFATE [Concomitant]
     Active Substance: MORPHINE SULFATE
     Indication: Pain
     Dosage: ER TABLET
     Route: 048
     Dates: start: 20141028
  12. MORPHINE SULFATE [Concomitant]
     Active Substance: MORPHINE SULFATE
     Indication: Pain
     Dosage: IMMEDIATE RELEASE TABLET
     Route: 048
  13. MOTRIN [Concomitant]
     Active Substance: IBUPROFEN
     Indication: Inflammation
     Dates: start: 20230316
  14. NEURONTIN [Concomitant]
     Active Substance: GABAPENTIN
     Indication: Neuralgia
     Dosage: ONE THREE TIMES A DAY AND 2 AT BEDTIME
     Dates: start: 20230619
  15. NURTEC ODT [Concomitant]
     Active Substance: RIMEGEPANT SULFATE
     Indication: Migraine
     Dosage: DISINTEGRATING TABLET
  16. ONDANSETRON HYDROCHLORIDE [Concomitant]
     Active Substance: ONDANSETRON HYDROCHLORIDE
     Indication: Nausea
     Dosage: TAKE 1 TABLET BY MOUTH EVERY 6 TO 8 HOURS
     Dates: start: 20230316
  17. PANTOPRAZOLE [Concomitant]
     Active Substance: PANTOPRAZOLE
     Indication: Gastrooesophageal reflux disease
     Dosage: DELAYED RELEASE TABLET
     Route: 048
     Dates: start: 20240521
  18. POTASSIUM CHLORIDE [Concomitant]
     Active Substance: POTASSIUM CHLORIDE
     Indication: Cardiac failure congestive
     Dosage: EXTENDED RELEASE TABLET
     Route: 048
     Dates: start: 20220602
  19. PRIMIDONE [Concomitant]
     Active Substance: PRIMIDONE
     Indication: Seizure
     Route: 048
     Dates: start: 20230718
  20. RIZATRIPTAN [Concomitant]
     Active Substance: RIZATRIPTAN
     Indication: Migraine
     Dosage: TAKE 1 TABLET BY MOUTH AT ONSET OF MIGRAINE, MAY REPEAT IN 2 HOURS, NO MORE THAN 2 IN 24HR PERIOD
     Route: 048
     Dates: start: 20220513
  21. TIZANIDINE [Concomitant]
     Active Substance: TIZANIDINE
     Indication: Muscle spasms
     Dosage: 2 TABLETS THREE TIMES A DAY, MAY CAUSE DROWSINESS
  22. TIZANIDINE [Concomitant]
     Active Substance: TIZANIDINE
     Route: 048
     Dates: start: 20240131
  23. VENLAFAXINE [Concomitant]
     Active Substance: VENLAFAXINE HYDROCHLORIDE
     Indication: Depression
     Dates: start: 20211122
  24. VITAMIN B12 [Concomitant]
     Active Substance: CYANOCOBALAMIN
     Indication: Vitamin B12 deficiency
     Dates: start: 20211122
  25. VITAMIN D NOS [Concomitant]
     Active Substance: CHOLECALCIFEROL\ERGOCALCIFEROL
     Indication: Vitamin D deficiency
     Route: 048
     Dates: start: 20211122
  26. XANAX [Concomitant]
     Active Substance: ALPRAZOLAM
     Indication: Anxiety
     Route: 048
     Dates: start: 20141215
  27. ZOFRAN [Concomitant]
     Active Substance: ONDANSETRON HYDROCHLORIDE
     Indication: Nausea
     Dosage: ODT DISINTEGRATING TABLET, TAKE ONE TABLET QD PRN
     Dates: start: 20230316
  28. TRULICITY [Concomitant]
     Active Substance: DULAGLUTIDE
     Indication: Diabetes mellitus
     Dates: start: 20240326

REACTIONS (12)
  - Multiple sclerosis relapse [Unknown]
  - Eyelid ptosis [Unknown]
  - Balance disorder [Unknown]
  - Fall [Unknown]
  - Photophobia [Unknown]
  - Phonophobia [Unknown]
  - Vomiting [Unknown]
  - Memory impairment [Unknown]
  - Dementia Alzheimer^s type [Unknown]
  - Increased appetite [Unknown]
  - Obstructive sleep apnoea syndrome [Unknown]
  - Contusion [Unknown]

NARRATIVE: CASE EVENT DATE: 20240128
